FAERS Safety Report 14356494 (Version 1)
Quarter: 2018Q1

REPORT INFORMATION
  Report Type: Spontaneous
  Country: BR (occurrence: BR)
  Receive Date: 20180105
  Receipt Date: 20180105
  Transmission Date: 20180509
  Serious: Yes (Other)
  Sender: FDA-Public Use
  Company Number: BR-009507513-1801BRA000302

PATIENT
  Age: 34 Year
  Sex: Female
  Weight: 60 kg

DRUGS (1)
  1. IMPLANON [Suspect]
     Active Substance: ETONOGESTREL
     Indication: MENSTRUAL CYCLE MANAGEMENT
     Dosage: 1 IMPLANT, INSERTED IN RIGHT ARM
     Route: 059
     Dates: start: 20160422

REACTIONS (7)
  - Implant site haemorrhage [Recovered/Resolved]
  - Complication associated with device [Not Recovered/Not Resolved]
  - Product use in unapproved indication [Unknown]
  - Menorrhagia [Recovered/Resolved]
  - Endometriosis ablation [Unknown]
  - Drug ineffective for unapproved indication [Not Recovered/Not Resolved]
  - Complication associated with device [Not Recovered/Not Resolved]

NARRATIVE: CASE EVENT DATE: 2016
